FAERS Safety Report 16974248 (Version 1)
Quarter: 2019Q4

REPORT INFORMATION
  Report Type: Report from Study
  Country: CA (occurrence: CA)
  Receive Date: 20191030
  Receipt Date: 20191030
  Transmission Date: 20200122
  Serious: Yes (Death, Hospitalization, Other)
  Sender: FDA-Public Use
  Company Number: PHHY2018CA035946

PATIENT
  Age: 72 Year
  Sex: Female

DRUGS (1)
  1. SANDOSTATIN LAR DEPOT [Suspect]
     Active Substance: OCTREOTIDE ACETATE
     Indication: CARCINOID TUMOUR
     Dosage: 30 MG, QMO (EVERY 4 WEEKS)
     Route: 030
     Dates: start: 20180102, end: 20190927

REACTIONS (11)
  - Respiratory tract infection [Recovering/Resolving]
  - Feeling abnormal [Unknown]
  - Memory impairment [Unknown]
  - Haematemesis [Unknown]
  - Death [Fatal]
  - Inflammation [Unknown]
  - Dysuria [Unknown]
  - Weight decreased [Unknown]
  - Decreased appetite [Unknown]
  - Bronchitis [Recovering/Resolving]
  - Blood pressure systolic increased [Unknown]

NARRATIVE: CASE EVENT DATE: 20180223
